FAERS Safety Report 24442418 (Version 2)
Quarter: 2024Q4

REPORT INFORMATION
  Report Type: Report from Study
  Country: GR (occurrence: GR)
  Receive Date: 20241016
  Receipt Date: 20241017
  Transmission Date: 20250114
  Serious: No
  Sender: ROCHE
  Company Number: GR-ROCHE-3543499

PATIENT

DRUGS (1)
  1. EMICIZUMAB [Suspect]
     Active Substance: EMICIZUMAB
     Indication: Factor VIII deficiency
     Dosage: 3MG/KG/W FOR 4 WEEKS, FOLLOWING BY 1.5MG/ KG/W
     Route: 058

REACTIONS (1)
  - Haemarthrosis [Recovering/Resolving]
